FAERS Safety Report 5169301-6 (Version None)
Quarter: 2006Q4

REPORT INFORMATION
  Report Type: 
  Country: None (occurrence: None)
  Receive Date: 20061201
  Receipt Date: 20061027
  Transmission Date: 20070319
  Serious: Yes (Hospitalization)
  Sender: FDA-Public Use
  Company Number: 2006R1-04278

PATIENT
  Age: 43 Year
  Sex: Male

DRUGS (5)
  1. PIROXICAM [Suspect]
     Dosage: TABLET, ORAL
     Route: 048
     Dates: start: 20060914, end: 20060926
  2. IMOVANE(ZOPICLONE) [Suspect]
     Dosage: ORAL
     Route: 048
     Dates: start: 20060615
  3. IBUPROFEN [Suspect]
     Dates: start: 20060925, end: 20060926
  4. PANTOPRAZOLE SODIUM [Suspect]
     Dates: start: 20060914, end: 20060926
  5. EFFEXOR [Suspect]
     Dates: start: 20060615, end: 20060927

REACTIONS (1)
  - RHABDOMYOLYSIS [None]
